FAERS Safety Report 13937753 (Version 3)
Quarter: 2018Q4

REPORT INFORMATION
  Report Type: Spontaneous
  Country: US (occurrence: US)
  Receive Date: 20170905
  Receipt Date: 20181211
  Transmission Date: 20190204
  Serious: Yes (Hospitalization, Other)
  Sender: FDA-Public Use
  Company Number: US-SA-2017SA116186

PATIENT
  Age: 61 Year
  Sex: Female

DRUGS (3)
  1. LOVENOX [Suspect]
     Active Substance: ENOXAPARIN SODIUM
     Indication: THROMBOSIS
     Dosage: 40 MG,QID
     Route: 065
  2. LOVENOX [Suspect]
     Active Substance: ENOXAPARIN SODIUM
     Dosage: 30 MG,QID
     Route: 065
  3. LOVENOX [Suspect]
     Active Substance: ENOXAPARIN SODIUM
     Dosage: 40 MG, BID

REACTIONS (19)
  - Blindness [Unknown]
  - Alopecia [Unknown]
  - Product use issue [Unknown]
  - Haemorrhage [Unknown]
  - Hyperglycaemia [Unknown]
  - Hypertension [Unknown]
  - Transient ischaemic attack [Unknown]
  - Hyperlipidaemia [Unknown]
  - Paraesthesia [Unknown]
  - Asthenia [Unknown]
  - Product quality issue [Unknown]
  - Adverse drug reaction [Unknown]
  - Skin burning sensation [Unknown]
  - Confusional state [Unknown]
  - Factor Xa activity decreased [Recovered/Resolved]
  - Peripheral coldness [Unknown]
  - Blister [Unknown]
  - Burning sensation [Unknown]
  - Blood glucose fluctuation [Unknown]
